FAERS Safety Report 9981918 (Version 1)
Quarter: 2014Q1

REPORT INFORMATION
  Report Type: Spontaneous
  Country: US (occurrence: None)
  Receive Date: 20140306
  Receipt Date: 20140306
  Transmission Date: 20141002
  Serious: No
  Sender: FDA-Public Use
  Company Number: None

PATIENT
  Age: 10 Year
  Sex: Male
  Weight: 26.8 kg

DRUGS (2)
  1. CLONIDINE [Suspect]
     Indication: ATTENTION DEFICIT/HYPERACTIVITY DISORDER
     Route: 048
     Dates: start: 20130414, end: 20140227
  2. VYVANSE [Concomitant]

REACTIONS (5)
  - Psychomotor hyperactivity [None]
  - Abnormal behaviour [None]
  - Disturbance in attention [None]
  - Product substitution issue [None]
  - Logorrhoea [None]
